FAERS Safety Report 8845832 (Version 1)
Quarter: 2012Q4

REPORT INFORMATION
  Report Type: 
  Country: US (occurrence: US)
  Receive Date: 20121017
  Receipt Date: 20121017
  Transmission Date: 20130627
  Serious: Yes (Death)
  Sender: FDA-Public Use
  Company Number: US-ROCHE-1137013

PATIENT
  Sex: Female

DRUGS (1)
  1. XELODA [Suspect]
     Indication: SQUAMOUS CELL CARCINOMA
     Route: 048
     Dates: start: 20110826, end: 20111028

REACTIONS (1)
  - Squamous cell carcinoma [Fatal]
